FAERS Safety Report 9897494 (Version 3)
Quarter: 2014Q1

REPORT INFORMATION
  Report Type: Report from Study
  Country: FR (occurrence: FR)
  Receive Date: 20140214
  Receipt Date: 20140324
  Transmission Date: 20141002
  Serious: Yes (Hospitalization)
  Sender: FDA-Public Use
  Company Number: FR-PFIZER INC-2014032846

PATIENT
  Age: 35 Year
  Sex: Male

DRUGS (4)
  1. SUTENT [Suspect]
     Indication: PHAEOCHROMOCYTOMA MALIGNANT
     Dosage: 37.5 MG, DAILY
     Route: 048
     Dates: start: 20140122, end: 20140207
  2. PLACEBO [Suspect]
     Indication: PHAEOCHROMOCYTOMA MALIGNANT
     Dosage: UNK
     Route: 048
  3. OXYNORM [Concomitant]
     Indication: PAIN
     Dosage: 5 MG, 2X/DAY
     Route: 048
  4. ALPRAZOLAM [Concomitant]
     Dosage: 0.25 MG, DAILY
     Route: 048

REACTIONS (1)
  - Metastatic pain [Recovered/Resolved]
